FAERS Safety Report 18761312 (Version 2)
Quarter: 2022Q1

REPORT INFORMATION
  Report Type: Spontaneous
  Country: AT (occurrence: AT)
  Receive Date: 20210120
  Receipt Date: 20220204
  Transmission Date: 20220423
  Serious: Yes (Other)
  Sender: FDA-Public Use
  Company Number: None

PATIENT
  Age: 77 Year
  Sex: Male

DRUGS (8)
  1. CAPECITABINE [Suspect]
     Active Substance: CAPECITABINE
     Indication: Chemotherapy
     Dosage: 825 MG/M2 KOF, RADIOCHEMOTHERAPY WITH CAPECITABINE 2X PER DAY
     Dates: start: 20201007, end: 20201113
  2. MITOMYCIN [Suspect]
     Active Substance: MITOMYCIN
     Indication: Chemotherapy
     Dosage: 10 MG/M2 KOF, RADIOCHEMOTHERAPY WITH MITOMYCIN C IN 2 CYCLES
     Dates: start: 20201007, end: 20201113
  3. DUTASTERIDE\TAMSULOSIN HYDROCHLORIDE [Suspect]
     Active Substance: DUTASTERIDE\TAMSULOSIN HYDROCHLORIDE
     Indication: Benign prostatic hyperplasia
     Dosage: DAILY ONE TABLET IN THE MORNING
     Dates: start: 202004
  4. CAPECITABINE [Suspect]
     Active Substance: CAPECITABINE
     Indication: Chemotherapy
     Dosage: 825 MG/M2 KOF, RADIOCHEMOTHERAPY WITH CAPECITABINE 2X PER DAY
     Dates: start: 20201111, end: 20201113
  5. POVIDONE-IODINE [Concomitant]
     Active Substance: POVIDONE-IODINE
     Dosage: 2 X PER DAY PENILE BATH FOR 10 DAYS, STANDARDISED SOLUTION
  6. PASPERTIN [Concomitant]
     Route: 042
  7. BANEOCIN [Concomitant]
     Dosage: 2 X PER DAY AT THE GLANS AREA FOR 10 DAYS
  8. LORNOXICAM [Concomitant]
     Active Substance: LORNOXICAM
     Indication: Pain

REACTIONS (7)
  - Nocturia [Recovering/Resolving]
  - Defaecation urgency [Unknown]
  - Therapeutic product effect incomplete [Unknown]
  - Dyschezia [Unknown]
  - Thrombocytopenia [Recovered/Resolved]
  - Leukopenia [Unknown]
  - Micturition urgency [Not Recovered/Not Resolved]

NARRATIVE: CASE EVENT DATE: 20200101
